FAERS Safety Report 6820966-X (Version None)
Quarter: 2010Q3

REPORT INFORMATION
  Report Type: 
  Country: None (occurrence: None)
  Receive Date: 20100707
  Receipt Date: 20070822
  Transmission Date: 20110219
  Serious: No
  Sender: FDA-Public Use
  Company Number: US-PFIZER INC-2007067223

PATIENT
  Sex: Female
  Weight: 61.4 kg

DRUGS (5)
  1. ZOLOFT [Suspect]
     Indication: DEPRESSION
     Dates: end: 20060101
  2. ZOLOFT [Suspect]
     Indication: ANXIETY
  3. SERTRALINE [Suspect]
     Indication: DEPRESSION
     Dates: start: 20060101, end: 20060101
  4. SERTRALINE [Suspect]
     Indication: ANXIETY
  5. VITAMINS [Concomitant]

REACTIONS (3)
  - ANXIETY [None]
  - DEPRESSION [None]
  - DRUG INEFFECTIVE [None]
